FAERS Safety Report 8791255 (Version 1)
Quarter: 2012Q4

REPORT INFORMATION
  Report Type: Spontaneous
  Country: GB (occurrence: None)
  Receive Date: 20120911
  Receipt Date: 20120911
  Transmission Date: 20130627
  Serious: Yes (Life-Threatening)
  Sender: FDA-Public Use
  Company Number: TUK2012A00241

PATIENT
  Age: 63 Year
  Sex: Female

DRUGS (2)
  1. COMPETACT [Suspect]
     Indication: DIABETES
     Route: 048
  2. AVANDAMET [Suspect]
     Indication: DIABETES

REACTIONS (2)
  - Normochromic normocytic anaemia [None]
  - Haemoglobin decreased [None]
